FAERS Safety Report 23674036 (Version 1)
Quarter: 2024Q1

REPORT INFORMATION
  Report Type: Report from Study
  Country: ZA (occurrence: ZA)
  Receive Date: 20240326
  Receipt Date: 20240326
  Transmission Date: 20240410
  Serious: Yes (Hospitalization)
  Sender: FDA-Public Use
  Company Number: ZA-TEVA-VS-3168946

PATIENT
  Age: 39 Year
  Sex: Female

DRUGS (2)
  1. COPAXONE [Suspect]
     Active Substance: GLATIRAMER ACETATE
     Indication: Multiple sclerosis
     Dosage: TIME INTERVAL: 0.33333333 WEEKS: DOSAGE: 40 MG/ML 40 MG/ML 3 TIMES A WEEK.
     Route: 058
     Dates: start: 20240304
  2. CORTISONE [Concomitant]
     Active Substance: CORTISONE

REACTIONS (9)
  - Viral infection [Not Recovered/Not Resolved]
  - Injection site pain [Recovering/Resolving]
  - Tachycardia [Not Recovered/Not Resolved]
  - Injection site erythema [Recovering/Resolving]
  - Immediate post-injection reaction [Not Recovered/Not Resolved]
  - Injection site mass [Recovering/Resolving]
  - Injection site abscess [Not Recovered/Not Resolved]
  - Fatigue [Not Recovered/Not Resolved]
  - Injection site inflammation [Not Recovered/Not Resolved]

NARRATIVE: CASE EVENT DATE: 20240306
